FAERS Safety Report 4538499-2 (Version None)
Quarter: 2004Q4

REPORT INFORMATION
  Report Type: 
  Country: None (occurrence: None)
  Receive Date: 20041227
  Receipt Date: 20030926
  Transmission Date: 20050328
  Serious: Yes (Life-Threatening, Hospitalization)
  Sender: FDA-Public Use
  Company Number: JP-BOEHRINGER INGELHEIM PHARMMACEUTICALS, INC.-2003-BP-08086NB

PATIENT
  Age: 78 Year
  Sex: Male
  Weight: 51 kg

DRUGS (9)
  1. MICARDIS [Suspect]
     Indication: HYPERTENSION
     Route: 048
     Dates: start: 20030730, end: 20030813
  2. MEXITIL [Concomitant]
     Route: 048
  3. PERDIPIN LA [Concomitant]
     Indication: HYPERTENSION
     Route: 048
     Dates: start: 20030729
  4. LOCHOL [Concomitant]
     Indication: BLOOD CHOLESTEROL DECREASED
     Route: 048
     Dates: start: 20030803
  5. FLIVAS [Concomitant]
     Indication: PAIN
     Route: 048
     Dates: start: 20030806
  6. SLOW-K [Concomitant]
     Route: 048
  7. RHYTHMY [Concomitant]
     Route: 048
  8. GASTER D [Concomitant]
     Route: 048
  9. SIGMART [Concomitant]
     Route: 048

REACTIONS (2)
  - BLOOD BILIRUBIN INCREASED [None]
  - BLOOD LACTATE DEHYDROGENASE INCREASED [None]
